FAERS Safety Report 5281528-1 (Version None)
Quarter: 2007Q1

REPORT INFORMATION
  Report Type: 
  Country: None (occurrence: None)
  Receive Date: 20070330
  Receipt Date: 20070319
  Transmission Date: 20070707
  Serious: Yes (Hospitalization, Other)
  Sender: FDA-Public Use
  Company Number: ZA-NOVOPROD-260432

PATIENT
  Age: 52 Year
  Sex: Male
  Weight: 89 kg

DRUGS (4)
  1. NOVOLOG MIX 70/30 [Suspect]
     Indication: DIABETES MELLITUS
     Dosage: 50 IU, QD
     Dates: start: 20061214, end: 20070123
  2. NOVOLOG MIX 70/30 [Suspect]
  3. CAPTOPRIL [Concomitant]
     Indication: HYPERTENSION
     Dosage: 12.5 MG, BID
     Route: 048
     Dates: start: 20050101
  4. ACTRAPHANE [Concomitant]
     Indication: DIABETES MELLITUS
     Dates: start: 20050503, end: 20061214

REACTIONS (5)
  - CONFUSIONAL STATE [None]
  - HYPERGLYCAEMIA [None]
  - HYPERSENSITIVITY [None]
  - INSOMNIA [None]
  - VISION BLURRED [None]
